FAERS Safety Report 12572139 (Version 1)
Quarter: 2016Q3

REPORT INFORMATION
  Report Type: Spontaneous
  Country: US (occurrence: US)
  Receive Date: 20160719
  Receipt Date: 20160719
  Transmission Date: 20161109
  Serious: No
  Sender: FDA-Public Use
  Company Number: US-MALLINCKRODT-T201600386

PATIENT
  Age: 65 Year
  Sex: Female

DRUGS (7)
  1. OXYCODONE/ACETAMINOPHEN [Suspect]
     Active Substance: ACETAMINOPHEN\OXYCODONE HYDROCHLORIDE
     Indication: PAIN
     Dosage: 5/325 MG, 1-2 TABS Q 4 HRS, PRN
     Route: 048
     Dates: start: 20160106, end: 20160107
  2. VENTOLIN HFA [Concomitant]
     Active Substance: ALBUTEROL SULFATE
  3. VITAMIN D [Concomitant]
     Active Substance: CHOLECALCIFEROL
  4. FLONASE [Concomitant]
     Active Substance: FLUTICASONE PROPIONATE
  5. BUMETANIDE. [Concomitant]
     Active Substance: BUMETANIDE
     Dosage: 0.5 MG
  6. ALORA [Concomitant]
     Active Substance: ESTRADIOL
     Dosage: 0.05 MG
  7. LEVOTHYROXINE. [Concomitant]
     Active Substance: LEVOTHYROXINE

REACTIONS (2)
  - Feeling abnormal [Recovered/Resolved]
  - Incorrect dose administered [Recovered/Resolved]

NARRATIVE: CASE EVENT DATE: 20160107
